FAERS Safety Report 5099872-X (Version None)
Quarter: 2006Q3

REPORT INFORMATION
  Report Type: 
  Country: None (occurrence: None)
  Receive Date: 20060906
  Receipt Date: 20060906
  Transmission Date: 20061208
  Serious: No
  Sender: FDA-Public Use
  Company Number: None

PATIENT
  Age: 67 Year
  Sex: Male
  Weight: 119.6135 kg

DRUGS (1)
  1. VYTORIN [Suspect]

REACTIONS (1)
  - SOMNOLENCE [None]
